FAERS Safety Report 16801422 (Version 5)
Quarter: 2019Q4

REPORT INFORMATION
  Report Type: Spontaneous
  Country: US (occurrence: US)
  Receive Date: 20190912
  Receipt Date: 20191230
  Transmission Date: 20200122
  Serious: Yes (Other)
  Sender: FDA-Public Use
  Company Number: US-MALLINCKRODT-T201905732

PATIENT
  Sex: Female

DRUGS (1)
  1. H.P. ACTHAR [Suspect]
     Active Substance: CORTICOTROPIN
     Indication: RHEUMATOID ARTHRITIS
     Dosage: 80 UNITS(1ML), THREE TIMES A WEEK AS DIRECTED
     Route: 058
     Dates: start: 201907

REACTIONS (7)
  - Arthropathy [Unknown]
  - Appetite disorder [Unknown]
  - Shoulder operation [Unknown]
  - Swelling face [Unknown]
  - Weight abnormal [Unknown]
  - Musculoskeletal discomfort [Unknown]
  - Blood glucose increased [Unknown]

NARRATIVE: CASE EVENT DATE: 2019
